FAERS Safety Report 16159798 (Version 1)
Quarter: 2019Q2

REPORT INFORMATION
  Report Type: Spontaneous
  Country: FR (occurrence: FR)
  Receive Date: 20190404
  Receipt Date: 20190404
  Transmission Date: 20190711
  Serious: Yes (Hospitalization)
  Sender: FDA-Public Use
  Company Number: FR-INDIVIOR LIMITED-INDV-118391-2019

PATIENT
  Age: 42 Year
  Sex: Male

DRUGS (3)
  1. NICOTIANA TABACUM [Suspect]
     Active Substance: TOBACCO LEAF
     Indication: TOBACCO USER
     Dosage: 20 TO 30 CIGARETTES PER DAY
     Route: 055
  2. SUBUTEX [Suspect]
     Active Substance: BUPRENORPHINE HYDROCHLORIDE
     Indication: PRODUCT USED FOR UNKNOWN INDICATION
     Dosage: 1 MG EVERY OTHER DAY
     Route: 060
  3. ALCOOL [Suspect]
     Active Substance: ALCOHOL
     Indication: ALCOHOL ABUSE
     Dosage: 20 INTERNATIONAL UNITS (IU) PER DAY
     Route: 048

REACTIONS (2)
  - Alcohol abuse [Not Recovered/Not Resolved]
  - Drug abuse [Not Recovered/Not Resolved]
